FAERS Safety Report 6301949-5 (Version None)
Quarter: 2009Q3

REPORT INFORMATION
  Report Type: 
  Country: None (occurrence: None)
  Receive Date: 20090807
  Receipt Date: 20090729
  Transmission Date: 20100115
  Serious: No
  Sender: FDA-Public Use
  Company Number: B0587349A

PATIENT
  Age: 26 Year
  Sex: Female

DRUGS (1)
  1. RELENZA [Suspect]
     Indication: VIRAL INFECTION
     Route: 065

REACTIONS (4)
  - BRONCHOSPASM [None]
  - COUGH [None]
  - DRUG EXPOSURE DURING PREGNANCY [None]
  - WHEEZING [None]
